FAERS Safety Report 6818835-4 (Version None)
Quarter: 2010Q2

REPORT INFORMATION
  Report Type: 
  Country: None (occurrence: None)
  Receive Date: 20100630
  Receipt Date: 20100615
  Transmission Date: 20101027
  Serious: Yes (Death, Hospitalization)
  Sender: FDA-Public Use
  Company Number: 2010074529

PATIENT
  Age: 72 Year
  Sex: Female
  Weight: 109 kg

DRUGS (6)
  1. FRAGMIN [Suspect]
     Indication: ATRIAL FIBRILLATION
     Dosage: 5000 IU, SUBCUTANEOUS
     Route: 058
     Dates: end: 20100525
  2. WARFARIN SODIUM [Suspect]
     Indication: ATRIAL FIBRILLATION
     Dosage: , ORAL
     Route: 048
  3. AMIODARONE HCL [Concomitant]
  4. CANDESARTAN CILEXETIL [Concomitant]
  5. ESOMEPRAZOLE MAGNESIUM [Concomitant]
  6. FUROSEMIDE [Concomitant]

REACTIONS (5)
  - FALL [None]
  - HEAD INJURY [None]
  - INTERNATIONAL NORMALISED RATIO DECREASED [None]
  - INTRACRANIAL PRESSURE INCREASED [None]
  - SUBDURAL HAEMORRHAGE [None]
